FAERS Safety Report 6792435-7 (Version None)
Quarter: 2010Q2

REPORT INFORMATION
  Report Type: 
  Country: None (occurrence: None)
  Receive Date: 20100624
  Receipt Date: 20100617
  Transmission Date: 20101027
  Serious: Yes (Hospitalization)
  Sender: FDA-Public Use
  Company Number: US-MERCK-1006USA02945

PATIENT
  Age: 56 Year
  Sex: Male

DRUGS (6)
  1. JANUMET [Suspect]
     Indication: DIABETES MELLITUS
     Route: 048
     Dates: start: 20090101, end: 20090601
  2. JANUMET [Suspect]
     Route: 048
     Dates: start: 20090701
  3. GLIPIZIDE [Concomitant]
     Route: 065
  4. LISINOPRIL [Concomitant]
     Route: 065
  5. CRESTOR [Concomitant]
     Route: 065
  6. NIACIN [Concomitant]
     Route: 065

REACTIONS (5)
  - BACK DISORDER [None]
  - BOWEL MOVEMENT IRREGULARITY [None]
  - CHOLELITHIASIS [None]
  - LIPASE INCREASED [None]
  - PAIN [None]
